FAERS Safety Report 13667423 (Version 3)
Quarter: 2018Q1

REPORT INFORMATION
  Report Type: Spontaneous
  Country: IT (occurrence: IT)
  Receive Date: 20170620
  Receipt Date: 20180303
  Transmission Date: 20180508
  Serious: Yes (Other)
  Sender: FDA-Public Use
  Company Number: IT-BAXTER-2017BAX023812

PATIENT
  Age: 69 Year
  Sex: Female
  Weight: 97 kg

DRUGS (3)
  1. PARACETAMOL [Concomitant]
     Active Substance: ACETAMINOPHEN
     Indication: HYPERPYREXIA
     Route: 042
  2. TEXTAZO [Suspect]
     Active Substance: PIPERACILLIN SODIUM\TAZOBACTAM SODIUM
     Indication: STOMA SITE ABSCESS
     Dosage: STRENGTH: 4 GR PLUS 500 MG; 1 POWDER VIAL; PHARMACEUTICAL FORM: POWDER AND SOLVENT FOR SOLUTION FOR
     Route: 042
     Dates: start: 20170529, end: 20170605
  3. METRONIDAZOLO BAXTER S.P.A. [Suspect]
     Active Substance: METRONIDAZOLE
     Indication: STOMA SITE ABSCESS
     Dosage: 0.5 G/ 100 ML, 25 VIALS 100 ML; PHARMACEUTICAL FORM: POWDER AND SOLVENT FOR SOLUTION FOR INTRAVENOUS
     Route: 042
     Dates: start: 20170529, end: 20170605

REACTIONS (2)
  - Erythema [Recovered/Resolved]
  - Pruritus [Recovered/Resolved]

NARRATIVE: CASE EVENT DATE: 20170605
